FAERS Safety Report 19918868 (Version 1)
Quarter: 2021Q4

REPORT INFORMATION
  Report Type: Spontaneous
  Country: ES (occurrence: ES)
  Receive Date: 20211005
  Receipt Date: 20211005
  Transmission Date: 20220303
  Serious: Yes (Hospitalization, Other)
  Sender: FDA-Public Use
  Company Number: ES-MLMSERVICE-20210921-3116276-1

PATIENT
  Age: 75 Year
  Sex: Female

DRUGS (1)
  1. TACROLIMUS [Suspect]
     Active Substance: TACROLIMUS
     Indication: Immunosuppressant drug therapy

REACTIONS (5)
  - Malacoplakia [Recovering/Resolving]
  - Septic shock [Recovered/Resolved]
  - Acute kidney injury [Recovering/Resolving]
  - Complications of transplanted kidney [Recovering/Resolving]
  - Escherichia infection [Recovered/Resolved]

NARRATIVE: CASE EVENT DATE: 20190501
